FAERS Safety Report 16566700 (Version 3)
Quarter: 2019Q4

REPORT INFORMATION
  Report Type: Report from Study
  Country: US (occurrence: US)
  Receive Date: 20190712
  Receipt Date: 20191001
  Transmission Date: 20200122
  Serious: Yes (Hospitalization)
  Sender: FDA-Public Use
  Company Number: US-PFIZER INC-2019216635

PATIENT
  Age: 64 Year
  Sex: Male

DRUGS (3)
  1. SUTENT [Suspect]
     Active Substance: SUNITINIB MALATE
     Indication: RENAL CELL CARCINOMA
     Dosage: 50 MG, CYCLIC (14 DAYS ON AND 7 DAYS OFF, ONCE A DAY,2 WEEKS ON AND ONE WEEK OFF)
     Route: 048
     Dates: start: 20190511
  2. SUTENT [Suspect]
     Active Substance: SUNITINIB MALATE
     Dosage: 50 MG, CYCLIC(ONCE A DAY)
     Route: 048
     Dates: start: 20190709, end: 20190917
  3. SUTENT [Suspect]
     Active Substance: SUNITINIB MALATE
     Dosage: 50 MG, CYCLIC (14 DAYS ON AND 7 DAYS OFF)
     Route: 048
     Dates: start: 20190522

REACTIONS (16)
  - Headache [Unknown]
  - Blood pressure increased [Unknown]
  - Neoplasm progression [Unknown]
  - Fatigue [Recovering/Resolving]
  - Peripheral swelling [Unknown]
  - Diarrhoea [Recovering/Resolving]
  - Duodenogastric reflux [Recovering/Resolving]
  - Glossodynia [Unknown]
  - Dizziness [Recovering/Resolving]
  - Taste disorder [Unknown]
  - Escherichia infection [Unknown]
  - Pyrexia [Unknown]
  - Pain in extremity [Recovering/Resolving]
  - Blood triglycerides increased [Recovering/Resolving]
  - Decreased appetite [Recovering/Resolving]
  - Stomatitis [Recovering/Resolving]

NARRATIVE: CASE EVENT DATE: 2019
